FAERS Safety Report 8973185 (Version 1)
Quarter: 2012Q4

REPORT INFORMATION
  Report Type: 
  Country: US (occurrence: US)
  Receive Date: 20121218
  Receipt Date: 20121218
  Transmission Date: 20130627
  Serious: No
  Sender: FDA-Public Use
  Company Number: US-B.I. PHARMACEUTICALS,INC./RIDGEFIELD-2012-BI-02503BP

PATIENT

DRUGS (1)
  1. CATAPRES TTS [Suspect]
     Dosage: 0.3 mg
     Route: 061

REACTIONS (1)
  - Dermatitis contact [Unknown]
